FAERS Safety Report 7545683-2 (Version None)
Quarter: 2011Q2

REPORT INFORMATION
  Report Type: 
  Country: None (occurrence: None)
  Receive Date: 20110614
  Receipt Date: 20110609
  Transmission Date: 20111010
  Serious: Yes (Hospitalization)
  Sender: FDA-Public Use
  Company Number: CH-BRISTOL-MYERS SQUIBB COMPANY-15817802

PATIENT
  Age: 50 Year
  Sex: Male

DRUGS (1)
  1. SPRYCEL [Suspect]
     Indication: GASTROINTESTINAL STROMAL TUMOUR
     Dosage: INTER ON 08MAY11
     Route: 048
     Dates: start: 20101015

REACTIONS (3)
  - STAPHYLOCOCCAL BACTERAEMIA [None]
  - INTESTINAL ANASTOMOSIS COMPLICATION [None]
  - PLEURAL EFFUSION [None]
